FAERS Safety Report 5209341-1 (Version None)
Quarter: 2006Q4

REPORT INFORMATION
  Report Type: 
  Country: None (occurrence: None)
  Receive Date: 20061101
  Receipt Date: 20051004
  Transmission Date: 20070319
  Serious: Yes (Other)
  Sender: FDA-Public Use
  Company Number: DSA_27210_2005

PATIENT
  Age: 37 Year
  Sex: Male

DRUGS (2)
  1. ATIVAN [Suspect]
     Indication: MOTION SICKNESS
     Dosage: DF UNK PO
     Route: 048
     Dates: start: 20050101, end: 20050101
  2. TRANSDERM SCOP [Suspect]
     Indication: MOTION SICKNESS
     Dosage: DF UNK TD
     Dates: start: 20050101, end: 20050101

REACTIONS (1)
  - CONVULSION [None]
